FAERS Safety Report 12098685 (Version 1)
Quarter: 2016Q1

REPORT INFORMATION
  Report Type: Spontaneous
  Country: VE (occurrence: VE)
  Receive Date: 20160222
  Receipt Date: 20160222
  Transmission Date: 20160526
  Serious: Yes (Other)
  Sender: FDA-Public Use
  Company Number: VE-ORION CORPORATION ORION PHARMA-ENTC2016-0079

PATIENT
  Sex: Male

DRUGS (2)
  1. STALEVO [Suspect]
     Active Substance: CARBIDOPA\ENTACAPONE\LEVODOPA
     Indication: PARKINSON^S DISEASE
     Route: 048
  2. FESTAL [Concomitant]
     Route: 065

REACTIONS (7)
  - Mobility decreased [Unknown]
  - Anxiety [Unknown]
  - Arthropathy [Unknown]
  - Malaise [Unknown]
  - Dysstasia [Unknown]
  - Akinesia [Unknown]
  - Tremor [Unknown]
